FAERS Safety Report 15058487 (Version 1)
Quarter: 2018Q2

REPORT INFORMATION
  Report Type: Spontaneous
  Country: US (occurrence: US)
  Receive Date: 20180625
  Receipt Date: 20180625
  Transmission Date: 20180711
  Serious: Yes (Other)
  Sender: FDA-Public Use
  Company Number: US-AUROBINDO-AUR-APL-2018-031836

PATIENT
  Age: 34 Year
  Sex: Male

DRUGS (1)
  1. PREDNISONE. [Suspect]
     Active Substance: PREDNISONE
     Indication: SINUSITIS
     Dosage: UNK
     Route: 048

REACTIONS (3)
  - Vision blurred [Unknown]
  - Visual impairment [Unknown]
  - Chorioretinopathy [Unknown]
